FAERS Safety Report 24666323 (Version 1)
Quarter: 2024Q4

REPORT INFORMATION
  Report Type: Spontaneous
  Country: US (occurrence: US)
  Receive Date: 20241126
  Receipt Date: 20241126
  Transmission Date: 20250115
  Serious: No
  Sender: ABBVIE
  Company Number: US-ABBVIE-6013166

PATIENT
  Sex: Female

DRUGS (2)
  1. LILETTA [Suspect]
     Active Substance: LEVONORGESTREL
     Indication: Heavy menstrual bleeding
     Dosage: TIME INTERVAL: AS NECESSARY
     Route: 015
  2. LILETTA [Suspect]
     Active Substance: LEVONORGESTREL
     Indication: Contraception

REACTIONS (1)
  - Drug ineffective [Unknown]
